FAERS Safety Report 20728588 (Version 3)
Quarter: 2022Q2

REPORT INFORMATION
  Report Type: Report from Study
  Country: BR (occurrence: BR)
  Receive Date: 20220420
  Receipt Date: 20220520
  Transmission Date: 20220721
  Serious: Yes (Hospitalization)
  Sender: FDA-Public Use
  Company Number: BR-ABBVIE-22K-020-4363344-00

PATIENT
  Sex: Male
  Weight: 103 kg

DRUGS (1)
  1. SKYRIZI [Suspect]
     Active Substance: RISANKIZUMAB-RZAA
     Indication: Psoriasis
     Route: 058
     Dates: start: 20201106, end: 202109

REACTIONS (4)
  - Erysipelas [Recovered/Resolved]
  - Erythema [Recovering/Resolving]
  - Joint swelling [Recovering/Resolving]
  - Vascular injury [Recovering/Resolving]

NARRATIVE: CASE EVENT DATE: 20210101
